FAERS Safety Report 8852988 (Version 1)
Quarter: 2012Q4

REPORT INFORMATION
  Report Type: 
  Country: US (occurrence: US)
  Receive Date: 20121022
  Receipt Date: 20121022
  Transmission Date: 20130627
  Serious: No
  Sender: FDA-Public Use
  Company Number: US-009507513-1210USA000770

PATIENT
  Sex: Female
  Weight: 107.94 kg

DRUGS (1)
  1. IMPLANON [Suspect]
     Indication: CONTRACEPTION
     Dosage: 1 DF, UNK Implanted for upto 3 years
     Route: 059
     Dates: start: 20111121

REACTIONS (3)
  - Road traffic accident [Recovering/Resolving]
  - Device breakage [Unknown]
  - Product quality issue [Unknown]
